FAERS Safety Report 15202822 (Version 1)
Quarter: 2018Q3

REPORT INFORMATION
  Report Type: Spontaneous
  Country: AT (occurrence: AT)
  Receive Date: 20180726
  Receipt Date: 20180726
  Transmission Date: 20181010
  Serious: Yes (Hospitalization, Other)
  Sender: FDA-Public Use
  Company Number: AT-IPSEN BIOPHARMACEUTICALS, INC.-2018-10644

PATIENT
  Age: 68 Year
  Sex: Female
  Weight: 60 kg

DRUGS (4)
  1. LOVENOX [Concomitant]
     Active Substance: ENOXAPARIN SODIUM
     Indication: THROMBOSIS PROPHYLAXIS
     Route: 058
     Dates: start: 20180630, end: 20180702
  2. SOMATULINE AUTOGEL 120MG [Suspect]
     Active Substance: LANREOTIDE ACETATE
     Indication: NEUROENDOCRINE TUMOUR
     Dosage: 120 MG
     Route: 058
  3. PANTOLOC [Concomitant]
     Active Substance: PANTOPRAZOLE SODIUM
     Indication: GASTRITIS PROPHYLAXIS
     Route: 048
     Dates: start: 20180629, end: 20180702
  4. 177LU?OPS201 [Concomitant]
     Indication: NEUROENDOCRINE TUMOUR
     Route: 042
     Dates: start: 20180626

REACTIONS (8)
  - Vomiting [Unknown]
  - Vitamin D deficiency [Unknown]
  - Pyrexia [Recovered/Resolved]
  - Nausea [Unknown]
  - Hypotension [Recovered/Resolved]
  - Hypokalaemia [Unknown]
  - Atrial fibrillation [Not Recovered/Not Resolved]
  - Inappropriate schedule of drug administration [Unknown]

NARRATIVE: CASE EVENT DATE: 20180626
